FAERS Safety Report 17040144 (Version 1)
Quarter: 2019Q4

REPORT INFORMATION
  Report Type: Spontaneous
  Country: US (occurrence: US)
  Receive Date: 20191116
  Receipt Date: 20191116
  Transmission Date: 20200122
  Serious: No
  Sender: FDA-Public Use
  Company Number: US-TORRENT-00007916

PATIENT
  Age: 61 Year
  Sex: Female
  Weight: 73 kg

DRUGS (4)
  1. LOSARTAN. [Suspect]
     Active Substance: LOSARTAN
     Indication: BLOOD PRESSURE MEASUREMENT
     Dosage: 25 MG OD
     Dates: start: 2018, end: 201903
  2. ISOSORBIDE NITRATE [Concomitant]
     Active Substance: ISOSORBIDE MONONITRATE
     Indication: PRINZMETAL ANGINA
     Dosage: TWO TIMES EVERY DAY
  3. CARTIA [Concomitant]
     Indication: ANGINA PECTORIS
     Dosage: ONCE IN A DAY IN MORNING
  4. FLUTICASONE. [Concomitant]
     Active Substance: FLUTICASONE
     Indication: ASTHMA
     Dosage: TWICE A DAY

REACTIONS (2)
  - Viral infection [Unknown]
  - Hepatic enzyme increased [Not Recovered/Not Resolved]
